FAERS Safety Report 6896487-5 (Version None)
Quarter: 2010Q3

REPORT INFORMATION
  Report Type: 
  Country: None (occurrence: None)
  Receive Date: 20100802
  Receipt Date: 20100630
  Transmission Date: 20110219
  Serious: No
  Sender: FDA-Public Use
  Company Number: US-BAYER-201018591NA

PATIENT
  Age: 75 Year
  Sex: Female
  Weight: 82 kg

DRUGS (3)
  1. ULTRAVIST (PHARMACY BULK) [Suspect]
     Indication: COMPUTERISED TOMOGRAM ABDOMEN
     Dosage: TOTAL DAILY DOSE: 100 ML  UNIT DOSE: 500 ML
     Route: 042
     Dates: start: 20100330, end: 20100330
  2. READI-CAT [Concomitant]
     Dosage: 2.5 HOURS PRIOR TO SCAN
     Route: 048
     Dates: start: 20100330, end: 20100330
  3. SALINE [Concomitant]
     Route: 042
     Dates: start: 20100330, end: 20100330

REACTIONS (2)
  - PRURITUS [None]
  - URTICARIA [None]
